FAERS Safety Report 18666395 (Version 1)
Quarter: 2020Q4

REPORT INFORMATION
  Report Type: Spontaneous
  Country: US (occurrence: US)
  Receive Date: 20201227
  Receipt Date: 20201227
  Transmission Date: 20210114
  Serious: No
  Sender: FDA-Public Use
  Company Number: US-JNJFOC-20201243572

PATIENT
  Age: 35 Year
  Sex: Male

DRUGS (3)
  1. TREMFYA [Suspect]
     Active Substance: GUSELKUMAB
  2. TREMFYA [Suspect]
     Active Substance: GUSELKUMAB
     Indication: PSORIATIC ARTHROPATHY
     Dosage: HIS LAST INJECTION WAS IN THE BEGINNING OF SEP/2020.
     Route: 065
  3. TREMFYA [Suspect]
     Active Substance: GUSELKUMAB
     Indication: PSORIASIS

REACTIONS (1)
  - Product dose omission issue [Unknown]

NARRATIVE: CASE EVENT DATE: 2020
